FAERS Safety Report 4492816-0 (Version None)
Quarter: 2004Q4

REPORT INFORMATION
  Report Type: 
  Country: None (occurrence: None)
  Receive Date: 20041103
  Receipt Date: 20041025
  Transmission Date: 20050328
  Serious: Yes (Life-Threatening, Hospitalization)
  Sender: FDA-Public Use
  Company Number: 2004UW17932

PATIENT
  Age: 50 Year
  Sex: Male
  Weight: 88.4514 kg

DRUGS (6)
  1. CRESTOR [Suspect]
     Indication: HYPERLIPIDAEMIA
     Dosage: 10 MG DAILY PO
     Route: 048
     Dates: start: 20040628, end: 20040728
  2. WELLBUTRIN [Concomitant]
  3. SEROQUEL [Concomitant]
  4. LISINOPRIL [Concomitant]
  5. CLINDAMYCIN HCL [Concomitant]
  6. XANAX [Concomitant]

REACTIONS (3)
  - DEEP VEIN THROMBOSIS [None]
  - FEELING ABNORMAL [None]
  - PULMONARY EMBOLISM [None]
